FAERS Safety Report 5716992-4 (Version None)
Quarter: 2008Q2

REPORT INFORMATION
  Report Type: 
  Country: None (occurrence: None)
  Receive Date: 20080424
  Receipt Date: 20080416
  Transmission Date: 20081010
  Serious: Yes (Other)
  Sender: FDA-Public Use
  Company Number: US-PFIZER INC-2007029704

PATIENT
  Sex: Female
  Weight: 71.7 kg

DRUGS (1)
  1. BEXTRA [Suspect]

REACTIONS (3)
  - BLINDNESS [None]
  - CEREBROVASCULAR ACCIDENT [None]
  - INSOMNIA [None]
